FAERS Safety Report 4730336-6 (Version None)
Quarter: 2005Q3

REPORT INFORMATION
  Report Type: 
  Country: None (occurrence: None)
  Receive Date: 20050729
  Receipt Date: 20050721
  Transmission Date: 20060218
  Serious: Yes (Other)
  Sender: FDA-Public Use
  Company Number: 05-07-1268

PATIENT
  Age: 52 Year
  Sex: Female

DRUGS (6)
  1. METFORMIN [Suspect]
     Dosage: 500 MG BD
  2. CLOZAPINE [Suspect]
     Dosage: 100MG BD ORAL
     Route: 048
     Dates: start: 20040930
  3. GLICLAZIDE [Suspect]
     Dosage: 80 MG BD
  4. FERROUS SULFATE TAB [Suspect]
     Dosage: 200 MG TDS
  5. AMISULPRIDE [Concomitant]
  6. CHLORPHENIRAMINE MALEATE [Concomitant]

REACTIONS (1)
  - PAROTID GLAND ENLARGEMENT [None]
